FAERS Safety Report 9161997 (Version 1)
Quarter: 2013Q1

REPORT INFORMATION
  Report Type: Spontaneous
  Country: CN (occurrence: None)
  Receive Date: 20130222
  Receipt Date: 20130222
  Transmission Date: 20140127
  Serious: Yes (Hospitalization)
  Sender: FDA-Public Use
  Company Number: SYM-2013-00746

PATIENT
  Age: 58 Year
  Sex: Female

DRUGS (12)
  1. FLUOROURACIL [Suspect]
     Indication: BREAST CANCER
     Dosage: (NOT OTHERWISE SPECIFIED)
     Route: 042
     Dates: start: 20070903, end: 20070903
  2. EPIRUBICIN [Suspect]
     Indication: BREAST CANCER
     Dosage: (NOT OTHERWISE SPECIFIED)
     Route: 042
     Dates: start: 20070903, end: 20070903
  3. CYCLOPHOSPHAMIDE [Suspect]
     Indication: BREAST CANCER
     Dosage: (NOT OTHERWISE SPECIFIED)
     Route: 042
     Dates: start: 20070903, end: 20070903
  4. SENNA [Concomitant]
  5. METOCLOPRAMIDE [Concomitant]
  6. THYMOL [Concomitant]
  7. INDOMETHACIN [Concomitant]
  8. FAMOTIDINE [Concomitant]
  9. COLCHICINE (COLCHICINE) (UNKNOWN) (COLCHICINE) [Concomitant]
  10. METHYL SALICYLATE (METHYL SALICYLATE)(UNKNOWN)(METHYL [Concomitant]
  11. MAGNESIUM ALUMINIUM W/SIMETHICONE (MAGNESIUM ALUMINIUM SILICAT COLLOID)(UNKNOWN) (MAGNESIUM ALUMINIUM SILICAT COLLOID) [Concomitant]
  12. DOXORUBICIN (DOXORUBICIN)(UNKNOWN)(DOXORUBICIN) [Concomitant]

REACTIONS (3)
  - Subcutaneous abscess [None]
  - Pyrexia [None]
  - Blood pressure increased [None]
